FAERS Safety Report 20049842 (Version 2)
Quarter: 2021Q4

REPORT INFORMATION
  Report Type: Spontaneous
  Country: CA (occurrence: None)
  Receive Date: 20211109
  Receipt Date: 20211229
  Transmission Date: 20220303
  Serious: Yes (Hospitalization, Other)
  Sender: FDA-Public Use
  Company Number: 2021A795855

PATIENT
  Age: 99 Year
  Sex: Female

DRUGS (4)
  1. DAPAGLIFLOZIN [Suspect]
     Active Substance: DAPAGLIFLOZIN
     Indication: Diabetic nephropathy
     Dosage: 10.0MG UNKNOWN
     Route: 048
     Dates: start: 20210824
  2. ROSUVASTATIN [Concomitant]
     Active Substance: ROSUVASTATIN
  3. CEFTIN [Concomitant]
     Active Substance: CEFUROXIME AXETIL
  4. IRBESARTAN [Concomitant]
     Active Substance: IRBESARTAN

REACTIONS (3)
  - Intestinal obstruction [Recovered/Resolved]
  - Acute kidney injury [Recovered/Resolved]
  - Hypophagia [Recovered/Resolved]
